FAERS Safety Report 5507212-4 (Version None)
Quarter: 2007Q4

REPORT INFORMATION
  Report Type: 
  Country: None (occurrence: None)
  Receive Date: 20071102
  Receipt Date: 20071024
  Transmission Date: 20080405
  Serious: Yes (Disabling)
  Sender: FDA-Public Use
  Company Number: 2007SP021672

PATIENT
  Age: 46 Year
  Sex: Female

DRUGS (2)
  1. PEG-INTRON [Suspect]
     Indication: HEPATITIS C
     Dosage: ; SC
     Route: 058
     Dates: start: 20070907
  2. RIBAVIRIN [Suspect]
     Indication: HEPATITIS C
     Dosage: ; PO
     Route: 048
     Dates: start: 20070907

REACTIONS (26)
  - ACCIDENT AT WORK [None]
  - ACTIVITIES OF DAILY LIVING IMPAIRED [None]
  - ALOPECIA [None]
  - ANOREXIA [None]
  - ANXIETY [None]
  - ASTHENIA [None]
  - BLOOD DISORDER [None]
  - CRYING [None]
  - DISTURBANCE IN ATTENTION [None]
  - DIZZINESS [None]
  - DRY MOUTH [None]
  - DYSGEUSIA [None]
  - DYSPNOEA [None]
  - EMOTIONAL DISORDER [None]
  - GINGIVAL BLEEDING [None]
  - HAEMORRHAGE [None]
  - HAIR GROWTH ABNORMAL [None]
  - HEADACHE [None]
  - MENSTRUATION DELAYED [None]
  - MENSTRUATION IRREGULAR [None]
  - MIGRAINE [None]
  - MUSCLE ATROPHY [None]
  - NAUSEA [None]
  - STRESS [None]
  - VOMITING [None]
  - WEIGHT DECREASED [None]
